FAERS Safety Report 15677776 (Version 1)
Quarter: 2018Q4

REPORT INFORMATION
  Report Type: Spontaneous
  Country: FR (occurrence: FR)
  Receive Date: 20181130
  Receipt Date: 20181130
  Transmission Date: 20190205
  Serious: No
  Sender: FDA-Public Use
  Company Number: FR-BIOVERATIV-2018BV000835

PATIENT
  Sex: Male

DRUGS (3)
  1. ELOCTA [Suspect]
     Active Substance: EFMOROCTOCOG ALFA
     Indication: PRODUCT USED FOR UNKNOWN INDICATION
     Dosage: ONCE
     Route: 065
  2. ELOCTA [Suspect]
     Active Substance: EFMOROCTOCOG ALFA
     Route: 065
  3. ELOCTA [Suspect]
     Active Substance: EFMOROCTOCOG ALFA
     Dosage: ONCE
     Route: 065

REACTIONS (1)
  - No adverse event [Unknown]
